FAERS Safety Report 25095574 (Version 1)
Quarter: 2025Q1

REPORT INFORMATION
  Report Type: Spontaneous
  Country: US (occurrence: None)
  Receive Date: 20250317
  Receipt Date: 20250317
  Transmission Date: 20250409
  Serious: No
  Sender: FDA-CTU
  Company Number: None

PATIENT
  Age: 54 Year
  Sex: Female

DRUGS (1)
  1. KESIMPTA [Suspect]
     Active Substance: OFATUMUMAB
     Dosage: FREQUENCY : MONTHLY;?
     Route: 058

REACTIONS (2)
  - Electric shock sensation [None]
  - Injection related reaction [None]

NARRATIVE: CASE EVENT DATE: 20250114
